FAERS Safety Report 23450595 (Version 1)
Quarter: 2024Q1

REPORT INFORMATION
  Report Type: Spontaneous
  Country: US (occurrence: None)
  Receive Date: 20240126
  Receipt Date: 20240126
  Transmission Date: 20240410
  Serious: No
  Sender: FDA-Public Use
  Company Number: None

PATIENT
  Sex: Male

DRUGS (1)
  1. AUSTEDO [Suspect]
     Active Substance: DEUTETRABENAZINE
     Indication: Extrapyramidal disorder
     Dosage: 12MG ONCE DAILY BY MOUTH?
     Route: 048
     Dates: start: 202312

REACTIONS (3)
  - Drug ineffective [None]
  - Therapy cessation [None]
  - Adverse drug reaction [None]
